FAERS Safety Report 4838028-X (Version None)
Quarter: 2005Q4

REPORT INFORMATION
  Report Type: 
  Country: None (occurrence: None)
  Receive Date: 20051123
  Receipt Date: 20051116
  Transmission Date: 20060501
  Serious: Yes (Hospitalization)
  Sender: FDA-Public Use
  Company Number: 2005-04496

PATIENT
  Age: 27 Year
  Sex: Female

DRUGS (1)
  1. TRELSTAR DEPOT [Suspect]
     Indication: ENDOMETRIOSIS
     Dosage: 3.75 MG, SINGLE, INTRMUSCULAR
     Route: 030
     Dates: start: 20050806, end: 20050905

REACTIONS (4)
  - HYDROCEPHALUS [None]
  - OPHTHALMOPLEGIA [None]
  - OPTIC NEURITIS [None]
  - PAPILLOEDEMA [None]
